FAERS Safety Report 24170676 (Version 1)
Quarter: 2024Q3

REPORT INFORMATION
  Report Type: Spontaneous
  Country: US (occurrence: None)
  Receive Date: 20240802
  Receipt Date: 20240802
  Transmission Date: 20241017
  Serious: No
  Sender: Public
  Company Number: None

PATIENT
  Sex: Male

DRUGS (2)
  1. LENVIMA [Suspect]
     Active Substance: LENVATINIB
     Indication: Renal cancer
     Dosage: 14 MG DAILY ORAL
     Route: 048
     Dates: start: 20240719
  2. ZORTRESS [Suspect]
     Active Substance: EVEROLIMUS
     Dates: start: 20240719

REACTIONS (1)
  - Death [None]
